FAERS Safety Report 5050588-5 (Version None)
Quarter: 2006Q3

REPORT INFORMATION
  Report Type: 
  Country: None (occurrence: None)
  Receive Date: 20060713
  Receipt Date: 20060704
  Transmission Date: 20061208
  Serious: Yes (Hospitalization)
  Sender: FDA-Public Use
  Company Number: FR-GLAXOSMITHKLINE-B0430406A

PATIENT
  Age: 84 Year
  Sex: Female
  Weight: 70 kg

DRUGS (8)
  1. DEROXAT [Suspect]
     Indication: DEPRESSION
     Dosage: 20MG PER DAY
     Route: 048
     Dates: start: 20060503
  2. STALEVO 100 [Suspect]
     Indication: PARKINSON'S DISEASE
     Dosage: 300MG THREE TIMES PER DAY
     Route: 048
     Dates: start: 20060214, end: 20060603
  3. LAROXYL [Concomitant]
     Indication: DYSTHYMIC DISORDER
     Dosage: 50MG PER DAY
     Route: 048
     Dates: start: 20030101
  4. LIPANTHYL [Concomitant]
     Indication: HYPERCHOLESTEROLAEMIA
     Dosage: 160MG PER DAY
     Route: 048
     Dates: start: 20030101
  5. SERESTA [Concomitant]
     Indication: DYSTHYMIC DISORDER
     Dosage: 10MG FOUR TIMES PER DAY
     Route: 048
     Dates: start: 20030101
  6. DAFALGAN [Concomitant]
     Indication: GENITAL PAIN FEMALE
     Route: 048
     Dates: start: 20030101
  7. NOVONORM [Concomitant]
     Dosage: 1MG PER DAY
     Dates: start: 20030101
  8. VASTAREL [Concomitant]
     Dosage: 2UNIT PER DAY
     Dates: start: 20040101

REACTIONS (2)
  - EPISTAXIS [None]
  - SKIN HAEMORRHAGE [None]
